FAERS Safety Report 9403523 (Version 1)
Quarter: 2013Q3

REPORT INFORMATION
  Report Type: Spontaneous
  Country: US (occurrence: US)
  Receive Date: 20130716
  Receipt Date: 20130716
  Transmission Date: 20140515
  Serious: Yes (Other)
  Sender: FDA-Public Use
  Company Number: US-JNJFOC-20130708781

PATIENT
  Age: 70 Year
  Sex: Male
  Weight: 71.22 kg

DRUGS (2)
  1. TYLENOL [Suspect]
     Route: 048
  2. TYLENOL [Suspect]
     Indication: PAIN MANAGEMENT
     Dosage: 2 PILLS, DAILY, SOMETIMES 30 PILLS A DAY
     Route: 048
     Dates: start: 19580701

REACTIONS (2)
  - Drug abuse [Unknown]
  - Overdose [Unknown]
